FAERS Safety Report 4838148-X (Version None)
Quarter: 2005Q4

REPORT INFORMATION
  Report Type: 
  Country: None (occurrence: None)
  Receive Date: 20051128
  Receipt Date: 20051118
  Transmission Date: 20060501
  Serious: Yes (Life-Threatening, Other)
  Sender: FDA-Public Use
  Company Number: JP-ABBOTT-05P-087-0317850-00

PATIENT
  Age: 57 Year
  Sex: Female
  Weight: 51 kg

DRUGS (4)
  1. CLARITHROMYCIN [Suspect]
     Indication: CHRONIC SINUSITIS
     Route: 048
     Dates: start: 20050929, end: 20051004
  2. LOXOPROFEN SODIUM [Concomitant]
     Indication: CHRONIC SINUSITIS
     Route: 048
     Dates: start: 20050929, end: 20051004
  3. REBAMIPIDE [Concomitant]
     Indication: GASTRITIS
     Route: 048
     Dates: start: 20050929, end: 20051004
  4. BETAMETHASONE D-CHLORPHENIRAMINE MALEATE [Concomitant]
     Indication: RHINITIS ALLERGIC
     Route: 048
     Dates: start: 20050929, end: 20051004

REACTIONS (6)
  - CARDIAC ARREST [None]
  - DYSPNOEA [None]
  - LONG QT SYNDROME [None]
  - RESPIRATORY ARREST [None]
  - SINUSITIS [None]
  - VENTRICULAR FIBRILLATION [None]
